FAERS Safety Report 16945619 (Version 2)
Quarter: 2019Q4

REPORT INFORMATION
  Report Type: Spontaneous
  Country: PL (occurrence: PL)
  Receive Date: 20191022
  Receipt Date: 20191230
  Transmission Date: 20200122
  Serious: No
  Sender: FDA-Public Use
  Company Number: PL-PFIZER INC-2019449068

PATIENT
  Age: 57 Year
  Sex: Female

DRUGS (1)
  1. FILGRASTIM [Suspect]
     Active Substance: FILGRASTIM
     Indication: FEBRILE NEUTROPENIA
     Dosage: 30000000 IU, DAILY(DOSAGE TEXT: 30 MILLION IU, QD FOR 7 CONSECUTIVE DAYS)
     Route: 058
     Dates: start: 2019, end: 2019

REACTIONS (2)
  - Asthenia [Unknown]
  - Fatigue [Unknown]

NARRATIVE: CASE EVENT DATE: 2019
